FAERS Safety Report 10253835 (Version 1)
Quarter: 2014Q2

REPORT INFORMATION
  Report Type: Spontaneous
  Country: US (occurrence: US)
  Receive Date: 20140623
  Receipt Date: 20140623
  Transmission Date: 20141212
  Serious: No
  Sender: FDA-Public Use
  Company Number: US-ZOGENIX, INC.-2011ZX000566

PATIENT
  Sex: Female
  Weight: 65.83 kg

DRUGS (5)
  1. SUMAVEL DOSEPRO [Suspect]
     Indication: MIGRAINE
  2. NEURONTIN [Concomitant]
     Indication: MIGRAINE PROPHYLAXIS
  3. PAXIL [Concomitant]
     Indication: DEPRESSION
  4. EVISTA [Concomitant]
     Indication: BONE LOSS
  5. EVISTA [Concomitant]
     Indication: NEOPLASM MALIGNANT

REACTIONS (3)
  - Injection site pain [Recovered/Resolved]
  - Injection site bruising [Recovered/Resolved]
  - Device malfunction [Recovered/Resolved]
